FAERS Safety Report 5125073-2 (Version None)
Quarter: 2006Q4

REPORT INFORMATION
  Report Type: 
  Country: None (occurrence: None)
  Receive Date: 20061010
  Receipt Date: 20061010
  Transmission Date: 20070319
  Serious: Yes (Other)
  Sender: FDA-Public Use
  Company Number: None

PATIENT
  Age: 75 Year
  Sex: Female
  Weight: 61.2356 kg

DRUGS (1)
  1. PLAVIX [Suspect]
     Indication: CORONARY ARTERY DISEASE
     Dosage: 1 TAB DAILY BUCCAL
     Route: 002
     Dates: start: 20060919, end: 20061007

REACTIONS (3)
  - ECCHYMOSIS [None]
  - HAEMATOMA [None]
  - PHARMACEUTICAL PRODUCT COMPLAINT [None]
